FAERS Safety Report 9919421 (Version 2)
Quarter: 2014Q1

REPORT INFORMATION
  Report Type: Spontaneous
  Country: JP (occurrence: JP)
  Receive Date: 20140224
  Receipt Date: 20140224
  Transmission Date: 20141002
  Serious: Yes (Death, Other)
  Sender: FDA-Public Use
  Company Number: JP-BAYER-2013-096865

PATIENT
  Age: 61 Year
  Sex: Male
  Weight: 60 kg

DRUGS (11)
  1. STIVARGA [Suspect]
     Indication: COLORECTAL CANCER
     Dosage: 160 MG, QD
     Route: 048
     Dates: start: 20130628, end: 20130730
  2. STIVARGA [Suspect]
     Indication: COLORECTAL CANCER
     Dosage: 160 MG, QD
     Route: 048
     Dates: start: 20130812, end: 20130826
  3. STIVARGA [Suspect]
     Indication: COLORECTAL CANCER
     Dosage: 120 MG, QD
     Route: 048
     Dates: start: 20130917, end: 20130930
  4. LOXONIN [Concomitant]
     Indication: PAIN MANAGEMENT
     Dosage: UNK
     Route: 048
     Dates: start: 20130624, end: 20130827
  5. MUCOSTA [Concomitant]
     Indication: GASTRIC HYPOMOTILITY
     Dosage: UNK
     Route: 048
     Dates: start: 20130624, end: 20130827
  6. KERATINAMIN [Concomitant]
     Indication: PROPHYLAXIS
     Dosage: UNK
     Route: 061
     Dates: start: 20130628, end: 20130819
  7. RINDERON [Concomitant]
     Indication: DECREASED APPETITE
     Dosage: DAILY DOSE 1 MG
     Route: 048
     Dates: start: 20130828, end: 20131101
  8. TAKEPRON [Concomitant]
     Indication: GASTRIC HYPOMOTILITY
     Dosage: DAILY DOSE 30 MG
     Route: 048
     Dates: start: 20130828, end: 20131101
  9. TRAMAL [Concomitant]
     Indication: CANCER PAIN
     Dosage: DAILY DOSE 100 MG
     Route: 048
     Dates: start: 20130828, end: 20130929
  10. OXYCONTIN [Concomitant]
     Indication: PAIN MANAGEMENT
     Dosage: UNK
     Dates: start: 20130930, end: 20131101
  11. OXINORM [OXYCODONE HYDROCHLORIDE] [Concomitant]
     Indication: PAIN MANAGEMENT
     Dosage: DAILY DOSE 5 MG
     Route: 048
     Dates: start: 20130930, end: 20131101

REACTIONS (4)
  - Hepatic cancer metastatic [Fatal]
  - Hepatic function abnormal [Recovering/Resolving]
  - Palmar-plantar erythrodysaesthesia syndrome [Recovered/Resolved]
  - Palmar-plantar erythrodysaesthesia syndrome [Recovered/Resolved]
